FAERS Safety Report 6786503-3 (Version None)
Quarter: 2010Q2

REPORT INFORMATION
  Report Type: 
  Country: None (occurrence: None)
  Receive Date: 20100623
  Receipt Date: 20100616
  Transmission Date: 20101027
  Serious: Yes (Hospitalization)
  Sender: FDA-Public Use
  Company Number: B0661458A

PATIENT
  Age: 70 Year
  Sex: Male

DRUGS (13)
  1. VALTREX [Suspect]
     Indication: HERPES ZOSTER
     Dosage: 3000MG PER DAY
     Route: 048
     Dates: start: 20100513, end: 20100517
  2. AMLODIPINE [Concomitant]
     Route: 048
  3. OLMETEC [Concomitant]
     Route: 048
  4. FAMOTIDINE [Concomitant]
     Route: 065
  5. FLIVAS [Concomitant]
     Route: 048
  6. UNKNOWN DRUG [Concomitant]
     Route: 048
  7. ASPARA-CA [Concomitant]
     Route: 065
  8. MAGMITT [Concomitant]
     Route: 048
  9. PLATIBIT [Concomitant]
     Route: 048
  10. ACTOS [Concomitant]
     Route: 048
  11. WARFARIN [Concomitant]
     Route: 048
  12. BESACOLIN [Concomitant]
     Route: 048
  13. MECOBALAMIN [Concomitant]
     Dosage: 1500MCG PER DAY
     Route: 048
     Dates: start: 20100513

REACTIONS (2)
  - CEREBRAL INFARCTION [None]
  - RENAL FAILURE ACUTE [None]
